FAERS Safety Report 4393169-9 (Version None)
Quarter: 2004Q3

REPORT INFORMATION
  Report Type: 
  Country: None (occurrence: None)
  Receive Date: 20040702
  Receipt Date: 20040413
  Transmission Date: 20050211
  Serious: Yes (Other)
  Sender: FDA-Public Use
  Company Number: 2004UW07376

PATIENT
  Age: 53 Year
  Sex: Female
  Weight: 61.2356 kg

DRUGS (10)
  1. CRESTOR [Suspect]
     Indication: BLOOD CHOLESTEROL INCREASED
     Dosage: 10 MG PO
     Route: 048
  2. ZOLOFT [Concomitant]
  3. CLONAPIN [Concomitant]
  4. SYNTHROID [Concomitant]
  5. ZYRTEC [Concomitant]
  6. VIOXX [Concomitant]
  7. TOPROL-XL [Concomitant]
  8. NEUROTON [Concomitant]
  9. PHENOBARBITAL TAB [Concomitant]
  10. ZESTORETIC [Concomitant]

REACTIONS (1)
  - LOOSE STOOLS [None]
